FAERS Safety Report 9170945 (Version 3)
Quarter: 2013Q2

REPORT INFORMATION
  Report Type: Report from Study
  Country: US (occurrence: US)
  Receive Date: 20130319
  Receipt Date: 20130530
  Transmission Date: 20140414
  Serious: Yes (Hospitalization, Other)
  Sender: FDA-Public Use
  Company Number: US-MYLANLABS-2013S1004714

PATIENT
  Age: 53 Year
  Sex: Male
  Weight: 79.83 kg

DRUGS (17)
  1. CLOZAPINE TABLETS [Suspect]
     Indication: SCHIZOPHRENIA, PARANOID TYPE
     Dates: start: 20121211, end: 20130306
  2. CLOZAPINE TABLETS [Suspect]
     Indication: SCHIZOPHRENIA, PARANOID TYPE
     Dates: start: 20130311
  3. LISINOPRIL [Concomitant]
     Route: 048
  4. ATENOLOL [Concomitant]
     Route: 048
  5. SINGULAIR [Concomitant]
     Route: 048
  6. SEROQUEL [Concomitant]
     Dosage: XR
     Dates: end: 20130312
  7. DEPAKOTE [Concomitant]
     Dosage: ER
     Route: 048
  8. HYDROXYZINE [Concomitant]
  9. SIMVASTATIN [Concomitant]
     Route: 048
  10. DICLOFENAC [Concomitant]
     Route: 048
  11. DOCUSATE [Concomitant]
     Route: 048
  12. FERROUS SULFATE [Concomitant]
     Route: 048
  13. BENZTROPINE [Concomitant]
     Route: 048
  14. LITHIUM [Concomitant]
     Dosage: 150MG/QAM - 450 QHS
     Route: 048
  15. FLUPHENAZINE DECANOATE [Concomitant]
     Dosage: INJECTION 2MLS
     Route: 030
  16. GLIPIZIDE [Concomitant]
     Route: 048
  17. METFORMIN [Concomitant]
     Route: 048

REACTIONS (4)
  - Granulocytopenia [Not Recovered/Not Resolved]
  - Leukopenia [Recovered/Resolved]
  - Hypoglycaemia [Recovered/Resolved]
  - Dizziness [Recovered/Resolved]
